FAERS Safety Report 4465608-6 (Version None)
Quarter: 2004Q4

REPORT INFORMATION
  Report Type: 
  Country: None (occurrence: None)
  Receive Date: 20041004
  Receipt Date: 20040921
  Transmission Date: 20050328
  Serious: Yes (Other)
  Sender: FDA-Public Use
  Company Number: JP-BRISTOL-MYERS SQUIBB COMPANY-12707428

PATIENT
  Age: 42 Year
  Sex: Female

DRUGS (2)
  1. KENACORT-A INJ [Suspect]
     Indication: RETINAL VEIN OCCLUSION
     Route: 031
     Dates: start: 20031023, end: 20031023
  2. KENACORT-A INJ [Suspect]
     Indication: MACULAR OEDEMA
     Route: 031
     Dates: start: 20031023, end: 20031023

REACTIONS (4)
  - INTRAOCULAR PRESSURE INCREASED [None]
  - INTRAOCULAR PRESSURE TEST [None]
  - KERATITIS HERPETIC [None]
  - UVEITIS [None]
